FAERS Safety Report 23877577 (Version 3)
Quarter: 2024Q2

REPORT INFORMATION
  Report Type: Spontaneous
  Country: US (occurrence: US)
  Receive Date: 20240521
  Receipt Date: 20240624
  Transmission Date: 20240716
  Serious: Yes (Other)
  Sender: FDA-Public Use
  Company Number: US-ORGANON-O2405USA000125

PATIENT
  Age: 24 Year
  Sex: Female
  Weight: 77.2 kg

DRUGS (2)
  1. NEXPLANON [Suspect]
     Active Substance: ETONOGESTREL
     Dosage: 1 IMPLANT IN LEFT ARM (68 MG)
     Route: 059
     Dates: start: 20210421, end: 20240501
  2. NEXPLANON [Suspect]
     Active Substance: ETONOGESTREL
     Indication: Contraception
     Dosage: 1 IMPLANT
     Route: 059
     Dates: start: 20240501, end: 20240508

REACTIONS (9)
  - Surgery [Unknown]
  - Device issue [Recovered/Resolved]
  - Weight increased [Unknown]
  - Complication associated with device [Recovered/Resolved]
  - Complication of device insertion [Not Recovered/Not Resolved]
  - Device issue [Not Recovered/Not Resolved]
  - Device deployment issue [Not Recovered/Not Resolved]
  - Wrong technique in product usage process [Unknown]
  - Complication associated with device [Recovered/Resolved]

NARRATIVE: CASE EVENT DATE: 20240501
